FAERS Safety Report 18883129 (Version 1)
Quarter: 2021Q1

REPORT INFORMATION
  Report Type: Spontaneous
  Country: US (occurrence: US)
  Receive Date: 20210211
  Receipt Date: 20210211
  Transmission Date: 20210420
  Serious: Yes (Hospitalization, Other)
  Sender: FDA-Public Use
  Company Number: None

PATIENT
  Age: 57 Year
  Sex: Male
  Weight: 75.7 kg

DRUGS (29)
  1. LISINOPRIL. [Concomitant]
     Active Substance: LISINOPRIL
  2. MILK OF MAGNESIA [Concomitant]
     Active Substance: MAGNESIUM HYDROXIDE
  3. DOCUSATE SODIUM. [Concomitant]
     Active Substance: DOCUSATE SODIUM
  4. ASCORBIC ACID. [Concomitant]
     Active Substance: ASCORBIC ACID
  5. CHLORHEXIDINE GLUCONATE ORAL RINSE, 0.12% [Suspect]
     Active Substance: CHLORHEXIDINE GLUCONATE
     Indication: PNEUMONIA
     Route: 049
  6. MORPHINE [Concomitant]
     Active Substance: MORPHINE
  7. ONDANSETRON [Concomitant]
     Active Substance: ONDANSETRON
  8. MULTIVITAMIN WITH FOLIC ACID [Concomitant]
  9. POLYETHYLENE GLYCOL [Concomitant]
     Active Substance: POLYETHYLENE GLYCOLS
  10. FENTANYL. [Concomitant]
     Active Substance: FENTANYL
  11. THIAMINE. [Concomitant]
     Active Substance: THIAMINE
  12. GUAIFENESIN. [Concomitant]
     Active Substance: GUAIFENESIN
  13. QUETIAPINE. [Concomitant]
     Active Substance: QUETIAPINE
  14. CEFAZOLIN [Concomitant]
     Active Substance: CEFAZOLIN
  15. BACITRACIN ZINC OINTMENT [Concomitant]
     Active Substance: BACITRACIN ZINC
  16. IPRATROPIUM/ALBUTEROL [Concomitant]
     Active Substance: ALBUTEROL\IPRATROPIUM
  17. LEVETIRACETAM. [Concomitant]
     Active Substance: LEVETIRACETAM
  18. OXYCODONE [Concomitant]
     Active Substance: OXYCODONE
  19. ROCURONIUM [Concomitant]
     Active Substance: ROCURONIUM BROMIDE
  20. BISACODYL. [Concomitant]
     Active Substance: BISACODYL
  21. ENOXAPARIN [Concomitant]
     Active Substance: ENOXAPARIN
  22. LABETALOL [Concomitant]
     Active Substance: LABETALOL\LABETALOL HYDROCHLORIDE
  23. SPIRONOLACTONE. [Concomitant]
     Active Substance: SPIRONOLACTONE
  24. PROPOFOL. [Concomitant]
     Active Substance: PROPOFOL
  25. FERROUS SULFATE. [Concomitant]
     Active Substance: FERROUS SULFATE
  26. CELECOXIB. [Concomitant]
     Active Substance: CELECOXIB
  27. VENELEX TOPICAL OINTMENT [Concomitant]
  28. VANCOMYCIN [Concomitant]
     Active Substance: VANCOMYCIN
  29. LORAZEPAM. [Concomitant]
     Active Substance: LORAZEPAM

REACTIONS (4)
  - Recalled product administered [None]
  - Dyspnoea [None]
  - Empyema [None]
  - Product contamination microbial [None]

NARRATIVE: CASE EVENT DATE: 20201006
